FAERS Safety Report 4615232-7 (Version None)
Quarter: 2005Q1

REPORT INFORMATION
  Report Type: 
  Country: None (occurrence: None)
  Receive Date: 20050322
  Receipt Date: 20050225
  Transmission Date: 20050727
  Serious: Yes (Other)
  Sender: FDA-Public Use
  Company Number: PHBS2005BE03032

PATIENT
  Age: 52 Year
  Sex: Female

DRUGS (17)
  1. ZOMETA [Suspect]
     Indication: BREAST CANCER
     Route: 042
     Dates: start: 20040823
  2. AREDIA [Suspect]
     Indication: BREAST CANCER
     Dosage: 90 MG, QMO
     Route: 042
     Dates: start: 20001121, end: 20040705
  3. RANITIDINE [Concomitant]
     Dosage: 300 MG/D
     Route: 065
  4. STILNOCT [Concomitant]
     Route: 065
  5. MOBIC [Concomitant]
     Route: 065
  6. CONTRAMAL [Concomitant]
     Route: 065
  7. MEDROL [Concomitant]
     Dosage: 32 MG/D
     Route: 065
     Dates: start: 20020601
  8. AUGMENTIN '125' [Concomitant]
     Route: 065
     Dates: start: 20020822
  9. RADIOTHERAPY [Concomitant]
     Dosage: RT OF THE SPINE
     Route: 065
     Dates: start: 20010101
  10. NAVELBINE [Concomitant]
     Route: 065
     Dates: start: 20010101
  11. HERCEPTIN [Concomitant]
     Route: 065
     Dates: start: 20010101
  12. HERCEPTIN [Concomitant]
     Dates: start: 20020201
  13. HERCEPTIN [Concomitant]
     Dates: start: 20021101
  14. HERCEPTIN [Concomitant]
     Dates: start: 20030401
  15. CARBOPLATIN [Concomitant]
     Route: 065
     Dates: start: 20020201
  16. XELODA [Concomitant]
     Route: 065
     Dates: start: 20030401
  17. TAXOTERE [Concomitant]
     Dates: start: 20020201

REACTIONS (11)
  - ABSCESS JAW [None]
  - ACTINOMYCOSIS [None]
  - ALPHA HAEMOLYTIC STREPTOCOCCAL INFECTION [None]
  - FISTULA [None]
  - HAEMATOTOXICITY [None]
  - IMPAIRED HEALING [None]
  - MOUTH ULCERATION [None]
  - ORAL SURGERY [None]
  - OSTEITIS [None]
  - OSTEOLYSIS [None]
  - WOUND DEBRIDEMENT [None]
